FAERS Safety Report 6681001-X (Version None)
Quarter: 2010Q2

REPORT INFORMATION
  Report Type: 
  Country: None (occurrence: None)
  Receive Date: 20100414
  Receipt Date: 20100401
  Transmission Date: 20101027
  Serious: Yes (Hospitalization)
  Sender: FDA-Public Use
  Company Number: DZ-GENENTECH-300129

PATIENT
  Age: 35 Year
  Sex: Female
  Weight: 85 kg

DRUGS (2)
  1. MABTHERA [Suspect]
     Indication: RHEUMATOID ARTHRITIS
     Dosage: 1000 MG, SINGLE
     Route: 042
     Dates: start: 20100201, end: 20100201
  2. MEDROL [Concomitant]
     Indication: INFLAMMATION
     Dosage: 32 MG, BID
     Route: 048

REACTIONS (1)
  - THROMBOPHLEBITIS [None]
